FAERS Safety Report 17268673 (Version 1)
Quarter: 2020Q1

REPORT INFORMATION
  Report Type: Spontaneous
  Country: US (occurrence: US)
  Receive Date: 20200114
  Receipt Date: 20200114
  Transmission Date: 20200409
  Serious: Yes (Death, Hospitalization)
  Sender: FDA-Public Use
  Company Number: US-PFIZER INC-2020014010

PATIENT
  Age: 38 Year
  Sex: Male

DRUGS (3)
  1. AMPHETAMINE [Suspect]
     Active Substance: AMPHETAMINE
     Dosage: UNK
     Route: 065
  2. MORPHINE SULFATE. [Suspect]
     Active Substance: MORPHINE SULFATE
     Dosage: UNK
     Route: 065
  3. METHAMPHETAMINE HCL [Suspect]
     Active Substance: METHAMPHETAMINE HYDROCHLORIDE
     Dosage: UNK
     Route: 065

REACTIONS (3)
  - Cardiac arrest [Fatal]
  - Respiratory arrest [Fatal]
  - Death [Fatal]

NARRATIVE: CASE EVENT DATE: 2018
